FAERS Safety Report 16968569 (Version 5)
Quarter: 2021Q1

REPORT INFORMATION
  Report Type: Spontaneous
  Country: DE (occurrence: DE)
  Receive Date: 20191029
  Receipt Date: 20210211
  Transmission Date: 20210419
  Serious: Yes (Death, Hospitalization, Other)
  Sender: FDA-Public Use
  Company Number: DE-009507513-1910DEU015421

PATIENT
  Age: 55 Year
  Sex: Female

DRUGS (32)
  1. PEMBROLIZUMAB. [Suspect]
     Active Substance: PEMBROLIZUMAB
     Dosage: 200 MILLIGRAM, EVERY 3 WEEKS; FORTH CYCLE
     Dates: start: 20190704, end: 20190704
  2. CARBOPLATIN. [Suspect]
     Active Substance: CARBOPLATIN
     Dosage: FIRST?LINE THERAPY; AUC5, ON DAY1, EVERY 3 WEEKS; SIXTH CYCLE
     Dates: start: 20190822, end: 20190822
  3. DOCETAXEL. [Suspect]
     Active Substance: DOCETAXEL
     Indication: NON-SMALL CELL LUNG CANCER METASTATIC
     Dosage: 75MG/M2, D1, EVERY 3 WEEKS; FIRST CYCLE
     Dates: start: 20190912, end: 20190912
  4. VARGATEF [Suspect]
     Active Substance: NINTEDANIB
     Dosage: 100MG, TWO, TWICE DAILY ORAL FROM DAY 2 UNTIL DAY 21, EVERY 3 WEEKS; THIRD CYCLE
     Route: 048
     Dates: start: 20191028, end: 20191028
  5. PEMBROLIZUMAB. [Suspect]
     Active Substance: PEMBROLIZUMAB
     Dosage: 200 MILLIGRAM, EVERY 3 WEEKS; SIXTH CYCLE
     Dates: start: 20190822, end: 20190822
  6. PEMETREXED DISODIUM [Suspect]
     Active Substance: PEMETREXED DISODIUM
     Dosage: 500 MILLIGRAM/SQ. METEREVERY 3 WEEKS ;SECOND?LINE THERAPY; SECOND CYCLE
     Dates: start: 20190523, end: 20190523
  7. DOCETAXEL. [Suspect]
     Active Substance: DOCETAXEL
     Dosage: 75MG/M2, D1, EVERY 3 WEEKS; THIRD CYCLE
     Dates: start: 20191028, end: 20191028
  8. CARBOPLATIN. [Suspect]
     Active Substance: CARBOPLATIN
     Dosage: FIRST?LINE THERAPY; AUC5, ON DAY1, EVERY 3 WEEKS; THIRD CYCLE
     Dates: start: 20190613, end: 20190613
  9. VARGATEF [Suspect]
     Active Substance: NINTEDANIB
     Indication: NON-SMALL CELL LUNG CANCER METASTATIC
     Dosage: 100MG, TWO, TWICE DAILY ORAL FROM DAY 2 UNTIL DAY 21, EVERY 3 WEEKS;FIRST CYCLE
     Route: 048
     Dates: start: 20190912, end: 20190912
  10. VARGATEF [Suspect]
     Active Substance: NINTEDANIB
     Dosage: 100MG, TWO, TWICE DAILY ORAL FROM DAY 2 UNTIL DAY 21, EVERY 3 WEEKS;
     Route: 048
     Dates: start: 20200326, end: 20200507
  11. CARBOPLATIN. [Suspect]
     Active Substance: CARBOPLATIN
     Indication: NON-SMALL CELL LUNG CANCER METASTATIC
     Dosage: FIRST?LINE THERAPY; AUC5, ON DAY1, EVERY 3 WEEKS; FIRST CYCLE
     Dates: start: 20190502, end: 20190502
  12. CARBOPLATIN. [Suspect]
     Active Substance: CARBOPLATIN
     Dosage: FIRST?LINE THERAPY; AUC5, ON DAY1, EVERY 3 WEEKS; FORTH CYCLE
     Dates: start: 20190704, end: 20190704
  13. PEMETREXED DISODIUM [Suspect]
     Active Substance: PEMETREXED DISODIUM
     Indication: NON-SMALL CELL LUNG CANCER METASTATIC
     Dosage: 500 MILLIGRAM/SQ. METEREVERY 3 WEEKS ;SECOND?LINE THERAPY; FIRST CYCLE
     Dates: start: 20190502
  14. VARGATEF [Suspect]
     Active Substance: NINTEDANIB
     Dosage: 100MG, TWO, TWICE DAILY ORAL FROM DAY 2 UNTIL DAY 21, EVERY 3 WEEKS; SECOND CYCLE
     Route: 048
     Dates: start: 20191007, end: 20191007
  15. VARGATEF [Suspect]
     Active Substance: NINTEDANIB
     Dosage: 7?9TH CYCLE
     Dates: start: 20200123, end: 20200305
  16. VARGATEF [Suspect]
     Active Substance: NINTEDANIB
     Dosage: 13TH CYCLE
     Dates: start: 20200526, end: 20200526
  17. CARBOPLATIN. [Suspect]
     Active Substance: CARBOPLATIN
     Dosage: FIRST?LINE THERAPY; AUC5, ON DAY1, EVERY 3 WEEKS; FIFTH CYCLE
     Dates: start: 20190725, end: 20190725
  18. PEMBROLIZUMAB. [Suspect]
     Active Substance: PEMBROLIZUMAB
     Indication: NON-SMALL CELL LUNG CANCER METASTATIC
     Dosage: 200 MILLIGRAM, EVERY 3 WEEKS; FIRST CYCLE
     Dates: start: 20190502, end: 20190502
  19. PEMBROLIZUMAB. [Suspect]
     Active Substance: PEMBROLIZUMAB
     Dosage: 200 MILLIGRAM, EVERY 3 WEEKS; THIRD CYCLE
     Dates: start: 20190613, end: 20190613
  20. PEMBROLIZUMAB. [Suspect]
     Active Substance: PEMBROLIZUMAB
     Dosage: 200 MILLIGRAM, EVERY 3 WEEKS; FIFTH CYCLE
     Dates: start: 20190725, end: 20190725
  21. PEMETREXED DISODIUM [Suspect]
     Active Substance: PEMETREXED DISODIUM
     Dosage: 500 MILLIGRAM/SQ. METEREVERY 3 WEEKS ;SECOND?LINE THERAPY; THIRD CYCLE
     Dates: start: 20190613, end: 20190613
  22. PEMETREXED DISODIUM [Suspect]
     Active Substance: PEMETREXED DISODIUM
     Dosage: 500 MILLIGRAM/SQ. METEREVERY 3 WEEKS ;2 CYCLES, SECOND?LINE THERAPY; FORTH CYCLE
     Dates: start: 20190704, end: 20190704
  23. PEMETREXED DISODIUM [Suspect]
     Active Substance: PEMETREXED DISODIUM
     Dosage: 500 MILLIGRAM/SQ. METEREVERY 3 WEEKS ;2 CYCLES, SECOND?LINE THERAPY; FIFTH CYCLE
     Dates: start: 20190725, end: 20190725
  24. PEMETREXED DISODIUM [Suspect]
     Active Substance: PEMETREXED DISODIUM
     Dosage: 500 MILLIGRAM/SQ. METEREVERY 3 WEEKS ;2 CYCLES, SECOND?LINE THERAPY; SIXTH CYCLE
     Dates: start: 20190822, end: 20190822
  25. DOCETAXEL. [Suspect]
     Active Substance: DOCETAXEL
     Dosage: 75MG/M2, D1, EVERY 3 WEEKS; SECOND CYCLE
     Dates: start: 20191007, end: 20191007
  26. DOCETAXEL. [Suspect]
     Active Substance: DOCETAXEL
     Dosage: 7?9TH CYCLE
     Dates: start: 20200123, end: 20200305
  27. PEMBROLIZUMAB. [Suspect]
     Active Substance: PEMBROLIZUMAB
     Dosage: 200 MILLIGRAM, EVERY 3 WEEKS; SECOND CYCLE
     Dates: start: 20190523, end: 20190523
  28. CARBOPLATIN. [Suspect]
     Active Substance: CARBOPLATIN
     Dosage: FIRST?LINE THERAPY; AUC5, ON DAY1, EVERY 3 WEEKS; SECOND CYCLE
     Dates: start: 20190523, end: 20190523
  29. DOCETAXEL. [Suspect]
     Active Substance: DOCETAXEL
     Dosage: 4?6TH CYCLE
     Dates: start: 20191119, end: 20200102
  30. DOCETAXEL. [Suspect]
     Active Substance: DOCETAXEL
     Dosage: 60MG/M2, D1, EVERY 3 WEEKS;
     Route: 042
     Dates: start: 20200326, end: 20200507
  31. DOCETAXEL. [Suspect]
     Active Substance: DOCETAXEL
     Dosage: 13TH CYCLE
     Dates: start: 20200526, end: 20200526
  32. VARGATEF [Suspect]
     Active Substance: NINTEDANIB
     Dosage: 4?6TH CYCLE
     Dates: start: 20191119, end: 20200102

REACTIONS (10)
  - Malignant neoplasm progression [Unknown]
  - Febrile neutropenia [Unknown]
  - Nausea [Unknown]
  - Inappropriate schedule of product administration [Unknown]
  - Pneumonitis [Unknown]
  - Neuropathy peripheral [Unknown]
  - Diarrhoea [Unknown]
  - Malignant neoplasm progression [Fatal]
  - Diarrhoea [Unknown]
  - Venous thrombosis [Recovering/Resolving]

NARRATIVE: CASE EVENT DATE: 20190627
